FAERS Safety Report 12698551 (Version 3)
Quarter: 2016Q4

REPORT INFORMATION
  Report Type: Spontaneous
  Country: GB (occurrence: GB)
  Receive Date: 20160830
  Receipt Date: 20161209
  Transmission Date: 20170207
  Serious: Yes (Hospitalization)
  Sender: FDA-Public Use
  Company Number: GB-009507513-1608GBR013837

PATIENT
  Age: 64 Year
  Sex: Male

DRUGS (12)
  1. ZOMORPH [Concomitant]
     Active Substance: MORPHINE SULFATE
     Indication: PRODUCT USED FOR UNKNOWN INDICATION
     Dosage: 60 MG, 2 IN 1 DAY (D)
     Route: 048
  2. AMITRIPTYLINE HYDROCHLORIDE. [Concomitant]
     Active Substance: AMITRIPTYLINE HYDROCHLORIDE
     Indication: PRODUCT USED FOR UNKNOWN INDICATION
     Dosage: 50 MG, UNK
     Route: 048
  3. BONEFOS [Concomitant]
     Active Substance: CLODRONATE DISODIUM
     Indication: PRODUCT USED FOR UNKNOWN INDICATION
     Dosage: 1800 MG, 1 IN 1 DAY (D); 1800 MG/ML
     Route: 048
  4. ACYCLOVIR. [Concomitant]
     Active Substance: ACYCLOVIR
     Indication: PRODUCT USED FOR UNKNOWN INDICATION
     Dosage: 400 MG, 1 IN 1 D
     Route: 048
  5. REVLIMID [Suspect]
     Active Substance: LENALIDOMIDE
     Indication: PLASMA CELL MYELOMA
     Dosage: 18.75 MG, (25 MG, 21 IN 28 D)
     Route: 048
     Dates: start: 20140924, end: 20160419
  6. ASPIRIN. [Concomitant]
     Active Substance: ASPIRIN
     Indication: PRODUCT USED FOR UNKNOWN INDICATION
     Dosage: 75 MG, 1 IN 1 DAY (D)
     Route: 048
  7. RANITIDINE. [Concomitant]
     Active Substance: RANITIDINE
     Indication: PRODUCT USED FOR UNKNOWN INDICATION
     Dosage: 150 MG, 2 IN 1 DAY (D)
     Route: 048
  8. DIAZEPAM. [Concomitant]
     Active Substance: DIAZEPAM
     Indication: PRODUCT USED FOR UNKNOWN INDICATION
     Dosage: 5 MG, UNK
     Route: 048
  9. ACETAMINOPHEN. [Concomitant]
     Active Substance: ACETAMINOPHEN
     Indication: PRODUCT USED FOR UNKNOWN INDICATION
     Dosage: 1 GM, 4 TIMES DAILY AS NECESSARY
     Route: 048
  10. PREGABALIN. [Concomitant]
     Active Substance: PREGABALIN
     Indication: PRODUCT USED FOR UNKNOWN INDICATION
     Dosage: 200 MG, 2 IN 1 DAY (D)
     Route: 048
  11. DEXAMETHASONE. [Suspect]
     Active Substance: DEXAMETHASONE
     Indication: PLASMA CELL MYELOMA
     Dosage: 40 MG, 1 IN 1 WEEK
     Route: 048
     Dates: start: 20140924, end: 20160420
  12. ORAMORPH [Concomitant]
     Active Substance: MORPHINE SULFATE
     Dosage: 5 MG, QID
     Route: 048

REACTIONS (5)
  - Vomiting [Recovered/Resolved]
  - Vomiting [Unknown]
  - Nausea [Recovered/Resolved]
  - Nausea [Recovered/Resolved]
  - Gastroenteritis [Recovered/Resolved]

NARRATIVE: CASE EVENT DATE: 20160322
